FAERS Safety Report 5675363-X (Version None)
Quarter: 2008Q1

REPORT INFORMATION
  Report Type: 
  Country: None (occurrence: None)
  Receive Date: 20080320
  Receipt Date: 20080313
  Transmission Date: 20080703
  Serious: Yes (Other)
  Sender: FDA-Public Use
  Company Number: CH-BOEHRINGER INGELHEIM GMBH, GERMANY-2007-DE-03320GD

PATIENT

DRUGS (5)
  1. CLONIDINE [Suspect]
     Indication: EPIDURAL ANAESTHESIA
     Dosage: 0.6 MCG/ML, DELIVERED AT A RATE OF 0.2 ML/KG/H AND A BOLUS OF 0.1 ML/KG/H (MAX 2 PER H), LOCKOUT TIM
     Route: 008
  2. BUPIVACAINE [Suspect]
     Indication: EPIDURAL ANAESTHESIA
     Dosage: 0.0625 %, DELIVERED AT A RATE OF 0.2 ML/KG/H AND A BOLUS OF 0.1 ML/KG/H (MAX 2 PER H), LOCKOUT TIME
     Route: 008
  3. FENTANYL [Suspect]
     Indication: EPIDURAL ANAESTHESIA
     Dosage: 1 MCG/ML, DELIVERED AT A RATE OF 0.2 ML/KG/H AND A BOLUS OF 0.1 ML/KG/H (MAX 2 PER H), LOCKOUT TIME
     Route: 008
  4. PARACETAMOL [Concomitant]
     Indication: POSTOPERATIVE ANALGESIA
     Dosage: 60 MG/KG
     Route: 042
  5. CEFUROXIME [Concomitant]
     Indication: ANTIBIOTIC PROPHYLAXIS
     Dosage: 75 MG/KG
     Route: 042

REACTIONS (2)
  - CATHETER RELATED COMPLICATION [None]
  - MUSCULAR WEAKNESS [None]
